FAERS Safety Report 8941329 (Version 1)
Quarter: 2012Q4

REPORT INFORMATION
  Report Type: 
  Country: US (occurrence: US)
  Receive Date: 20121203
  Receipt Date: 20121203
  Transmission Date: 20130627
  Serious: Yes (Life-Threatening, Hospitalization)
  Sender: FDA-Public Use
  Company Number: US-ROCHE-1158209

PATIENT
  Sex: Male

DRUGS (12)
  1. VALIUM [Suspect]
     Indication: ANXIETY
     Route: 065
  2. LISINOPRIL [Suspect]
     Indication: HYPERTENSION
     Route: 065
  3. PREVACID [Suspect]
     Indication: GASTRIC DISORDER
     Route: 065
  4. LEVOTHYROXINE [Suspect]
     Indication: HYPOTHYROIDISM
     Route: 065
  5. FENTANYL [Suspect]
     Indication: PAIN
     Dosage: 75 or 50 mg daily
     Route: 065
  6. FENTANYL [Suspect]
     Dosage: 75 or 50 mg daily
     Route: 065
  7. OXYCONTIN [Suspect]
     Indication: PAIN
     Route: 065
  8. OXYCONTIN [Suspect]
     Route: 065
  9. ALCOHOL [Suspect]
     Indication: PRODUCT USED FOR UNKNOWN INDICATION
     Route: 065
  10. ULTRAM [Suspect]
     Indication: PRODUCT USED FOR UNKNOWN INDICATION
     Route: 065
  11. MELOXICAM [Suspect]
     Indication: ARTHRITIS
     Route: 065
     Dates: end: 2012
  12. CHANTIX [Suspect]
     Indication: EX-TOBACCO USER
     Route: 048
     Dates: end: 20121103

REACTIONS (11)
  - Chest pain [Unknown]
  - Blood pressure increased [Unknown]
  - Nausea [Unknown]
  - Headache [Unknown]
  - Decreased appetite [Unknown]
  - Weight decreased [Unknown]
  - Somnolence [Unknown]
  - Asthenia [Unknown]
  - Arthritis [Unknown]
  - Eye disorder [Unknown]
  - Psychotic behaviour [Unknown]
